FAERS Safety Report 23961854 (Version 1)
Quarter: 2024Q2

REPORT INFORMATION
  Report Type: Report from Study
  Country: US (occurrence: None)
  Receive Date: 20240611
  Receipt Date: 20240611
  Transmission Date: 20240716
  Serious: Yes (Hospitalization)
  Sender: FDA-Public Use
  Company Number: 2024A129939

PATIENT
  Age: 82 Year
  Sex: Male
  Weight: 105 kg

DRUGS (1)
  1. KOSELUGO [Suspect]
     Active Substance: SELUMETINIB
     Indication: Lung carcinoma cell type unspecified stage I
     Route: 048
     Dates: start: 20231101

REACTIONS (9)
  - Troponin increased [Unknown]
  - Atrial fibrillation [Unknown]
  - Wheezing [Unknown]
  - Abscess limb [Unknown]
  - Blood pressure decreased [Unknown]
  - Klebsiella urinary tract infection [Recovered/Resolved]
  - Blood creatinine increased [Unknown]
  - Fatigue [Unknown]
  - Asthenia [Unknown]

NARRATIVE: CASE EVENT DATE: 20240316
